FAERS Safety Report 4710091-6 (Version None)
Quarter: 2005Q3

REPORT INFORMATION
  Report Type: 
  Country: None (occurrence: None)
  Receive Date: 20050706
  Receipt Date: 20050706
  Transmission Date: 20060218
  Serious: Yes (Other)
  Sender: FDA-Public Use
  Company Number: None

PATIENT
  Age: 36 Year
  Sex: Female
  Weight: 92.0802 kg

DRUGS (1)
  1. LEVOTHYROXINE 112 MG [Suspect]
     Indication: HYPOTHYROIDISM
     Dosage: 112 MG QD PO
     Route: 048
     Dates: start: 20040101, end: 20050101

REACTIONS (2)
  - NAUSEA [None]
  - PHARMACEUTICAL PRODUCT COMPLAINT [None]
